FAERS Safety Report 6119267-7 (Version None)
Quarter: 2009Q1

REPORT INFORMATION
  Report Type: 
  Country: None (occurrence: None)
  Receive Date: 20090316
  Receipt Date: 20090312
  Transmission Date: 20090719
  Serious: Yes (Death)
  Sender: FDA-Public Use
  Company Number: NL-ASTRAZENECA-2009AC00844

PATIENT
  Age: 17 Year

DRUGS (2)
  1. PROPOFOL [Suspect]
     Indication: SEDATION
     Route: 042
  2. MANNITOL [Concomitant]

REACTIONS (1)
  - PROPOFOL INFUSION SYNDROME [None]
